FAERS Safety Report 14261174 (Version 4)
Quarter: 2018Q1

REPORT INFORMATION
  Report Type: Other
  Country: ES (occurrence: ES)
  Receive Date: 20171207
  Receipt Date: 20180302
  Transmission Date: 20180508
  Serious: Yes (Life-Threatening, Hospitalization, Congenital Anomaly, Other)
  Sender: FDA-Public Use
  Company Number: ES-MACLEODS PHARMACEUTICALS US LTD-MAC2017006491

PATIENT

DRUGS (4)
  1. AMLODIPINE BESYLATE. [Concomitant]
     Active Substance: AMLODIPINE BESYLATE
     Indication: EXPOSURE DURING PREGNANCY
     Dosage: UNK
     Route: 064
  2. OLMESARTAN TABLET [Suspect]
     Active Substance: OLMESARTAN
     Indication: ESSENTIAL HYPERTENSION
  3. AMLODIPINE BESYLATE. [Concomitant]
     Active Substance: AMLODIPINE BESYLATE
     Indication: ESSENTIAL HYPERTENSION
  4. OLMESARTAN TABLET [Suspect]
     Active Substance: OLMESARTAN
     Indication: EXPOSURE DURING PREGNANCY
     Dosage: UNK
     Route: 064

REACTIONS (13)
  - Off label use [Not Recovered/Not Resolved]
  - Anaemia [Recovered/Resolved]
  - Renal failure [Recovered/Resolved]
  - Hypotonia neonatal [Recovered/Resolved]
  - Areflexia [Recovered/Resolved]
  - Pneumothorax [Recovered/Resolved]
  - Hypotension [Recovered/Resolved]
  - Potter^s syndrome [Recovering/Resolving]
  - Foetal exposure during pregnancy [Recovered/Resolved]
  - Proteinuria [Recovered/Resolved]
  - Oligohydramnios [Not Recovered/Not Resolved]
  - Anuria [Recovered/Resolved]
  - Pulmonary hypoplasia [Recovered/Resolved]
